FAERS Safety Report 7637307-0 (Version None)
Quarter: 2011Q3

REPORT INFORMATION
  Report Type: 
  Country: None (occurrence: None)
  Receive Date: 20110726
  Receipt Date: 20110713
  Transmission Date: 20111222
  Serious: Yes (Hospitalization, Other)
  Sender: FDA-Public Use
  Company Number: US-ELI_LILLY_AND_COMPANY-US201011006098

PATIENT
  Sex: Female
  Weight: 122.45 kg

DRUGS (3)
  1. FORTEO [Suspect]
     Dosage: 20 UG, QD
  2. FORTEO [Suspect]
     Indication: OSTEOPOROSIS
     Dosage: 20 UG, DAILY (1/D)
     Route: 065
     Dates: start: 20101029
  3. CALCIUM ACETATE [Concomitant]

REACTIONS (7)
  - INJECTION SITE HAEMORRHAGE [None]
  - INJECTION SITE SCAB [None]
  - ARTHRITIS [None]
  - BLOOD CALCIUM INCREASED [None]
  - INJECTION SITE ERYTHEMA [None]
  - OBESITY [None]
  - INJECTION SITE MASS [None]
